FAERS Safety Report 9788821 (Version 1)
Quarter: 2013Q4

REPORT INFORMATION
  Report Type: Spontaneous
  Country: US (occurrence: US)
  Receive Date: 20131230
  Receipt Date: 20131230
  Transmission Date: 20140711
  Serious: No
  Sender: FDA-Public Use
  Company Number: US-ASTRAZENECA-2013SE75978

PATIENT
  Age: 69 Year
  Sex: Female
  Weight: 59 kg

DRUGS (18)
  1. BRILINTA [Suspect]
     Indication: STENT PLACEMENT
     Route: 048
     Dates: start: 201310
  2. ASPIRIN [Concomitant]
     Indication: CARDIAC DISORDER
     Route: 048
  3. BENACAR [Concomitant]
     Indication: BLOOD PRESSURE ABNORMAL
     Route: 048
  4. ZETIA [Concomitant]
     Indication: CARDIAC DISORDER
     Route: 048
  5. XANAX [Concomitant]
     Route: 048
  6. NITROFURADANTOIN [Concomitant]
     Route: 048
  7. MULTIVITAMIN [Concomitant]
     Indication: SUPPLEMENTATION THERAPY
     Dosage: DAILY
     Route: 048
  8. ACIPHEX [Concomitant]
     Dosage: DAILY
     Route: 048
  9. AMBIEN [Concomitant]
     Indication: SLEEP DISORDER
     Route: 048
  10. TESTOSTERONE GEL [Concomitant]
     Route: 061
  11. VITAMIN C [Concomitant]
     Indication: SUPPLEMENTATION THERAPY
     Route: 048
  12. VITAMIN E [Concomitant]
     Indication: SUPPLEMENTATION THERAPY
     Route: 048
  13. POTASSIUM 2 [Concomitant]
     Route: 048
  14. POTASSIUM GLUCONATE [Concomitant]
     Indication: SUPPLEMENTATION THERAPY
     Route: 048
  15. D3 VITAMIN [Concomitant]
     Indication: SUPPLEMENTATION THERAPY
     Dosage: 10,000 UNITS DAILY
     Route: 048
  16. FOLIC ACID [Concomitant]
     Indication: SUPPLEMENTATION THERAPY
     Route: 048
  17. CALCIUM- MAGNESIUM COMPLEX [Concomitant]
     Indication: SUPPLEMENTATION THERAPY
     Dosage: DAILY
     Route: 048
  18. NITROGLYCERIN [Concomitant]
     Indication: CHEST PAIN
     Dosage: PRN
     Route: 048

REACTIONS (9)
  - Heart rate irregular [Unknown]
  - Feeling cold [Unknown]
  - Rhinorrhoea [Unknown]
  - Rhinorrhoea [Unknown]
  - Heart rate increased [Unknown]
  - Blood pressure increased [Unknown]
  - Chest discomfort [Unknown]
  - Dyspnoea [Unknown]
  - Dizziness [Unknown]
